FAERS Safety Report 23531123 (Version 2)
Quarter: 2024Q2

REPORT INFORMATION
  Report Type: Report from Study
  Country: BE (occurrence: BE)
  Receive Date: 20240216
  Receipt Date: 20240405
  Transmission Date: 20240716
  Serious: Yes (Hospitalization, Disabling)
  Sender: FDA-Public Use
  Company Number: BE-002147023-NVSC2023BE005316

PATIENT
  Age: 73 Year
  Sex: Male
  Weight: 99.9 kg

DRUGS (18)
  1. FLUOROURACIL [Suspect]
     Active Substance: FLUOROURACIL
     Dosage: 4800 MG, Q2W
     Route: 042
     Dates: start: 20230104
  2. FLUOROURACIL [Suspect]
     Active Substance: FLUOROURACIL
     Indication: Colorectal cancer metastatic
     Dosage: 800 MG, Q2W
     Route: 042
     Dates: start: 20230104
  3. BEVACIZUMAB [Suspect]
     Active Substance: BEVACIZUMAB
     Indication: Product used for unknown indication
     Dosage: 500 MG, Q2W
     Route: 042
     Dates: start: 20230104
  4. IRINOTECAN [Suspect]
     Active Substance: IRINOTECAN
     Indication: Colorectal cancer metastatic
     Dosage: 360 MG, Q2W
     Route: 042
     Dates: start: 20230104
  5. LEVOLEUCOVORIN [Suspect]
     Active Substance: LEVOLEUCOVORIN
     Indication: Colorectal cancer metastatic
     Dosage: 400 MG, Q2W
     Route: 042
     Dates: start: 20230104
  6. LEVOLEUCOVORIN [Suspect]
     Active Substance: LEVOLEUCOVORIN
     Dosage: 400 MG, Q2W
     Route: 041
     Dates: start: 20230104
  7. DEXAMETHASONE [Concomitant]
     Active Substance: DEXAMETHASONE
     Indication: Premedication
     Dosage: UNK
     Route: 065
     Dates: start: 20230104
  8. ALLOPURINOL [Concomitant]
     Active Substance: ALLOPURINOL
     Indication: Gout
     Dosage: UNK
     Route: 065
     Dates: start: 20140101
  9. ASPIRIN [Concomitant]
     Active Substance: ASPIRIN
     Indication: Cardiovascular event prophylaxis
     Dosage: UNK
     Route: 065
     Dates: start: 20140101
  10. ATROPINE BOURNONVILLE PHARM [Concomitant]
     Indication: Premedication
     Dosage: UNK
     Route: 065
     Dates: start: 20230104, end: 20230114
  11. ATROPINE SULFATE [Concomitant]
     Active Substance: ATROPINE SULFATE
     Indication: Premedication
     Dosage: UNK
     Route: 065
     Dates: start: 20230104, end: 20230114
  12. ENOXAPARIN SODIUM [Concomitant]
     Active Substance: ENOXAPARIN SODIUM
     Indication: Thrombosis prophylaxis
     Dosage: UNK
     Route: 065
     Dates: start: 20230109, end: 20230111
  13. PERINDOPRIL [Concomitant]
     Active Substance: PERINDOPRIL
     Indication: Hypertension
     Dosage: UNK
     Route: 065
     Dates: start: 20140104
  14. Dexa-rhinospray [Concomitant]
     Indication: Prophylaxis
     Dosage: UNK
     Route: 065
  15. GAVISCON [Concomitant]
     Active Substance: ALUMINUM HYDROXIDE\MAGNESIUM CARBONATE
     Indication: Gastrointestinal disorder prophylaxis
     Dosage: UNK
     Route: 065
     Dates: start: 20230103
  16. PALONOSETRON HYDROCHLORIDE [Concomitant]
     Active Substance: PALONOSETRON HYDROCHLORIDE
     Indication: Premedication
     Dosage: UNK
     Route: 065
     Dates: start: 20230104
  17. MAGNESIUM GLUCONATE [Concomitant]
     Active Substance: MAGNESIUM GLUCONATE
     Indication: Prophylaxis
     Dosage: UNK
     Route: 065
  18. ALLOPURINOL [Concomitant]
     Active Substance: ALLOPURINOL
     Indication: Gout
     Dosage: UNK
     Route: 065
     Dates: start: 20140101

REACTIONS (1)
  - Diarrhoea [Recovered/Resolved]

NARRATIVE: CASE EVENT DATE: 20230109
